FAERS Safety Report 8776940 (Version 15)
Quarter: 2014Q2

REPORT INFORMATION
  Report Type: Spontaneous
  Country: US (occurrence: US)
  Receive Date: 20120911
  Receipt Date: 20140626
  Transmission Date: 20141212
  Serious: Yes (Hospitalization)
  Sender: FDA-Public Use
  Company Number: US-GLAXOSMITHKLINE-A0908208A

PATIENT
  Age: 37 Year
  Sex: Male
  Weight: 86.7 kg

DRUGS (17)
  1. FLOLAN [Suspect]
     Indication: PULMONARY ARTERIAL HYPERTENSION
     Dosage: 40.22NGKM CONTINUOUS
     Route: 042
     Dates: start: 20100506
  2. ADCIRCA [Suspect]
     Indication: PRODUCT USED FOR UNKNOWN INDICATION
     Route: 065
  3. GABAPENTIN [Concomitant]
     Dosage: 300MG THREE TIMES PER DAY
     Route: 048
  4. KLONOPIN [Concomitant]
     Dosage: 1MG TWICE PER DAY
     Route: 048
  5. ATIVAN [Concomitant]
     Dosage: 5MG AT NIGHT
     Route: 048
  6. ZOLPIDEM [Concomitant]
     Dosage: 5MG AT NIGHT
     Route: 048
  7. CYCLOBENZAPRINE [Concomitant]
     Dosage: 5MG TWICE PER DAY
     Route: 048
  8. WARFARIN SODIUM [Concomitant]
     Dosage: 4MG PER DAY
     Route: 048
  9. LASIX [Concomitant]
     Dosage: 20MG PER DAY
     Route: 048
  10. LIPITOR [Concomitant]
     Dosage: 40MG AT NIGHT
     Route: 048
  11. ZOFRAN [Concomitant]
     Dosage: 4MG FOUR TIMES PER DAY
     Route: 048
  12. TYLENOL [Concomitant]
     Dosage: 325MG SIX TIMES PER DAY
     Route: 048
  13. COUMADIN [Concomitant]
  14. VITAMIN B12 [Concomitant]
  15. LETAIRIS [Concomitant]
  16. COUMADIN [Concomitant]
  17. FLOLAN DILUENT [Concomitant]
     Route: 065

REACTIONS (30)
  - Pneumonia [Unknown]
  - Sepsis [Unknown]
  - Cerebrovascular accident [Unknown]
  - Medical device complication [Unknown]
  - Catheter site haemorrhage [Unknown]
  - Nausea [Unknown]
  - Headache [Unknown]
  - Hypoaesthesia [Unknown]
  - Paraesthesia [Unknown]
  - Back pain [Unknown]
  - Pain in extremity [Unknown]
  - Dyspnoea [Unknown]
  - International normalised ratio decreased [Unknown]
  - Movement disorder [Unknown]
  - Body temperature increased [Unknown]
  - Intervertebral disc protrusion [Unknown]
  - Catheter site discharge [Unknown]
  - Pallor [Unknown]
  - Fatigue [Unknown]
  - Pain [Recovering/Resolving]
  - Medical device complication [Recovering/Resolving]
  - Catheter site erythema [Unknown]
  - Musculoskeletal chest pain [Recovering/Resolving]
  - Pleural effusion [Recovering/Resolving]
  - Lung disorder [Unknown]
  - Investigation [Unknown]
  - Haemorrhage [Unknown]
  - Catheter site pain [Not Recovered/Not Resolved]
  - Pain in jaw [Unknown]
  - Central venous catheterisation [Unknown]
